FAERS Safety Report 14345252 (Version 2)
Quarter: 2020Q3

REPORT INFORMATION
  Report Type: Report from Study
  Country: CN (occurrence: CN)
  Receive Date: 20180103
  Receipt Date: 20181022
  Transmission Date: 20201104
  Serious: Yes (Life-Threatening, Hospitalization)
  Sender: FDA-Public Use
  Company Number: CN-ASTRAZENECA-2018SE01172

PATIENT
  Age: 13006 Day
  Sex: Female

DRUGS (7)
  1. TREMELIMUMAB. [Suspect]
     Active Substance: TREMELIMUMAB
     Indication: NON-SMALL CELL LUNG CANCER
     Dosage: 63.0MG ONCE/SINGLE ADMINISTRATION
     Route: 042
     Dates: start: 20171121, end: 20171121
  2. MEDI4736 [Suspect]
     Active Substance: DURVALUMAB
     Indication: NON-SMALL CELL LUNG CANCER
     Dosage: 1260.0MG ONCE/SINGLE ADMINISTRATION
     Route: 042
     Dates: start: 20171121, end: 20171121
  3. TREMELIMUMAB. [Suspect]
     Active Substance: TREMELIMUMAB
     Indication: NON-SMALL CELL LUNG CANCER
     Dosage: 63.0MG ONCE/SINGLE ADMINISTRATION
     Route: 042
     Dates: start: 20171024, end: 20171024
  4. RIBOFLAVIN [Concomitant]
     Active Substance: RIBOFLAVIN
     Dosage: TWO TIMES A DAY
     Route: 061
     Dates: start: 20171108, end: 20171205
  5. MEDI4736 [Suspect]
     Active Substance: DURVALUMAB
     Indication: NON-SMALL CELL LUNG CANCER
     Dosage: 1260.0MG ONCE/SINGLE ADMINISTRATION
     Route: 042
     Dates: start: 20170926, end: 20170926
  6. MEDI4736 [Suspect]
     Active Substance: DURVALUMAB
     Indication: NON-SMALL CELL LUNG CANCER
     Dosage: 1260.0MG ONCE/SINGLE ADMINISTRATION
     Route: 042
     Dates: start: 20171024, end: 20171024
  7. TREMELIMUMAB. [Suspect]
     Active Substance: TREMELIMUMAB
     Indication: NON-SMALL CELL LUNG CANCER
     Dosage: 63.0MG ONCE/SINGLE ADMINISTRATION
     Route: 042
     Dates: start: 20170926, end: 20170926

REACTIONS (1)
  - Pneumonia [Not Recovered/Not Resolved]

NARRATIVE: CASE EVENT DATE: 20171218
